FAERS Safety Report 8096131-8 (Version None)
Quarter: 2012Q1

REPORT INFORMATION
  Report Type: 
  Country: None (occurrence: None)
  Receive Date: 20120131
  Receipt Date: 20120127
  Transmission Date: 20120608
  Serious: Yes (Other)
  Sender: FDA-Public Use
  Company Number: US-GLAXOSMITHKLINE-A0963530A

PATIENT
  Age: 16 Year
  Sex: Female

DRUGS (7)
  1. ADVAIR DISKUS 100/50 [Suspect]
     Indication: BRONCHITIS
     Dosage: 1PUFF TWICE PER DAY
     Route: 055
     Dates: start: 20111001
  2. VITAMIN D [Concomitant]
  3. IRON SUPPLEMENT [Concomitant]
  4. ALBUTEROL [Concomitant]
  5. ADVAIR DISKUS 100/50 [Suspect]
     Indication: ASTHMA EXERCISE INDUCED
     Dosage: 1PUFF TWICE PER DAY
     Route: 055
     Dates: start: 20090101, end: 20120120
  6. VITAMIN TAB [Concomitant]
  7. CALCIUM [Concomitant]

REACTIONS (2)
  - STRESS FRACTURE [None]
  - MUSCLE RIGIDITY [None]
